FAERS Safety Report 17649318 (Version 2)
Quarter: 2020Q2

REPORT INFORMATION
  Report Type: Spontaneous
  Country: IL (occurrence: IL)
  Receive Date: 20200408
  Receipt Date: 20200422
  Transmission Date: 20200713
  Serious: Yes (Other)
  Sender: FDA-Public Use
  Company Number: IL-DUCHESNAY-2020IL000034

PATIENT
  Sex: Male

DRUGS (3)
  1. OMEPRADEX [Concomitant]
     Active Substance: OMEPRAZOLE
     Route: 064
  2. DICLECTIN [Suspect]
     Active Substance: DOXYLAMINE SUCCINATE\PYRIDOXINE HYDROCHLORIDE
     Indication: FOETAL EXPOSURE DURING PREGNANCY
     Dosage: UNK
     Route: 064
     Dates: start: 20190731, end: 20190803
  3. COLCHICINE. [Concomitant]
     Active Substance: COLCHICINE
     Route: 064

REACTIONS (1)
  - Foetal growth restriction [Unknown]
